FAERS Safety Report 24632103 (Version 2)
Quarter: 2024Q4

REPORT INFORMATION
  Report Type: Spontaneous
  Country: US (occurrence: US)
  Receive Date: 20241118
  Receipt Date: 20241121
  Transmission Date: 20250115
  Serious: No
  Sender: PFIZER
  Company Number: US-PFIZER INC-PV202400148986

PATIENT
  Age: 69 Year
  Sex: Male

DRUGS (1)
  1. VISTARIL [Suspect]
     Active Substance: HYDROXYZINE PAMOATE
     Indication: Anxiety
     Dosage: 100 MG (1 DF) AT BEDTIME AS NEEDED
     Route: 048

REACTIONS (2)
  - Product prescribing issue [Unknown]
  - Off label use [Unknown]
